FAERS Safety Report 7366939-2 (Version None)
Quarter: 2011Q1

REPORT INFORMATION
  Report Type: 
  Country: None (occurrence: None)
  Receive Date: 20110317
  Receipt Date: 20110317
  Transmission Date: 20110831
  Serious: Yes (Hospitalization)
  Sender: FDA-Public Use
  Company Number: None

PATIENT
  Sex: Female
  Weight: 63.5036 kg

DRUGS (1)
  1. VENTOLIN HFA [Suspect]
     Indication: ASTHMA
     Dosage: 2 PUFFS 4 TIMES DAILY PO
     Route: 048
     Dates: start: 20110228, end: 20110228

REACTIONS (8)
  - DYSPNOEA [None]
  - NAUSEA [None]
  - BALANCE DISORDER [None]
  - PYREXIA [None]
  - HEADACHE [None]
  - DYSSTASIA [None]
  - CHILLS [None]
  - GAIT DISTURBANCE [None]
